FAERS Safety Report 18962698 (Version 1)
Quarter: 2021Q1

REPORT INFORMATION
  Report Type: Spontaneous
  Country: US (occurrence: US)
  Receive Date: 20210302
  Receipt Date: 20210302
  Transmission Date: 20210420
  Serious: Yes (Hospitalization)
  Sender: FDA-Public Use
  Company Number: None

PATIENT
  Age: 58 Year
  Sex: Female
  Weight: 84 kg

DRUGS (2)
  1. CLINDAMYCIN. [Suspect]
     Active Substance: CLINDAMYCIN
     Route: 048
     Dates: start: 20200504, end: 20200511
  2. SULFAMETHOXAZOLE/TRIMETHOPRIM [Suspect]
     Active Substance: SULFAMETHOXAZOLE\TRIMETHOPRIM
     Indication: CELLULITIS
     Route: 048
     Dates: start: 20200505

REACTIONS (7)
  - Dysphagia [None]
  - Rash erythematous [None]
  - Rash pruritic [None]
  - Adverse drug reaction [None]
  - Acute kidney injury [None]
  - Rash [None]
  - Hepatic enzyme increased [None]

NARRATIVE: CASE EVENT DATE: 20200511
